FAERS Safety Report 6977329-6 (Version None)
Quarter: 2010Q3

REPORT INFORMATION
  Report Type: 
  Country: None (occurrence: None)
  Receive Date: 20100910
  Receipt Date: 20100827
  Transmission Date: 20110219
  Serious: Yes (Other)
  Sender: FDA-Public Use
  Company Number: PHFR2010GB03144

PATIENT
  Sex: Female
  Weight: 48 kg

DRUGS (2)
  1. RIVASTIGMINE [Suspect]
     Indication: DEMENTIA
     Dosage: 4.6 MG
     Route: 062
     Dates: start: 20100817, end: 20100818
  2. FENTANYL CITRATE [Concomitant]
     Indication: PAIN
     Dosage: 50UG
     Route: 062
     Dates: start: 20100805

REACTIONS (2)
  - DEPRESSED LEVEL OF CONSCIOUSNESS [None]
  - GENERAL PHYSICAL HEALTH DETERIORATION [None]
